FAERS Safety Report 5282490-8 (Version None)
Quarter: 2007Q1

REPORT INFORMATION
  Report Type: 
  Country: None (occurrence: None)
  Receive Date: 20070326
  Receipt Date: 20070314
  Transmission Date: 20070707
  Serious: Yes (Other)
  Sender: FDA-Public Use
  Company Number: 238320

PATIENT
  Age: 78 Year
  Sex: Female
  Weight: 58.2 kg

DRUGS (12)
  1. AVASTIN [Suspect]
     Indication: COLORECTAL CANCER METASTATIC
     Dosage: 5 MG/KG, Q2W, INTRAVENOUS
     Route: 042
     Dates: start: 20061226
  2. OXALIPLATIN [Suspect]
     Indication: COLORECTAL CANCER METASTATIC
     Dosage: 85 MG/M2, Q2W, INTRAVENOUS
     Route: 042
     Dates: start: 20061226
  3. FLUOROURACIL [Suspect]
     Indication: COLORECTAL CANCER METASTATIC
     Dosage: 2400 MG/M2, INTRAVENOUS
     Route: 042
     Dates: start: 20061226
  4. LEUCOVORIN CALCIUM [Suspect]
     Indication: COLORECTAL CANCER METASTATIC
     Dosage: 200 MG/M2, Q2W, INTRAVENOUS
     Route: 042
     Dates: start: 20061226
  5. CALCIUM/MAGNESIUM OR PLACEBO(CALCIUM/MAGNESIUM OR PLACEBO) [Suspect]
     Indication: COLORECTAL CANCER METASTATIC
     Dosage: 1 UNIT, Q2W, INTRAVENOUS
     Route: 042
     Dates: start: 20061226
  6. DECADRON [Suspect]
     Indication: PREMEDICATION
  7. BENADRYL [Suspect]
     Indication: PREMEDICATION
  8. ONDANSETRON HCL [Concomitant]
  9. ACETAMINOPHEN [Concomitant]
  10. METOPROLOL TARTRATE [Concomitant]
  11. TELMISARTAN (TELMISARTAN) [Concomitant]
  12. POTASSIUM CHLORIDE [Concomitant]

REACTIONS (5)
  - BLOOD GLUCOSE INCREASED [None]
  - BLOOD SODIUM DECREASED [None]
  - CATHETER RELATED COMPLICATION [None]
  - CONFUSIONAL STATE [None]
  - ILLUSION [None]
